FAERS Safety Report 4268713-2 (Version None)
Quarter: 2004Q1

REPORT INFORMATION
  Report Type: 
  Country: None (occurrence: None)
  Receive Date: 20040109
  Receipt Date: 20031219
  Transmission Date: 20041129
  Serious: Yes (Death, Other)
  Sender: FDA-Public Use
  Company Number: JP_030801663

PATIENT
  Age: 66 Year
  Sex: Male
  Weight: 75 kg

DRUGS (2)
  1. GEMZAR [Suspect]
     Indication: NON-SMALL CELL LUNG CANCER
     Dosage: 1000 MG/M2/OTHER
     Route: 050
     Dates: start: 20021210, end: 20021217
  2. TAXOTERE [Concomitant]

REACTIONS (5)
  - CARDIAC TAMPONADE [None]
  - CONDITION AGGRAVATED [None]
  - LUNG ADENOCARCINOMA STAGE III [None]
  - MALIGNANT NEOPLASM PROGRESSION [None]
  - PERICARDITIS [None]
